FAERS Safety Report 8618286-6 (Version None)
Quarter: 2012Q3

REPORT INFORMATION
  Report Type: 
  Country: None (occurrence: None)
  Receive Date: 20120824
  Receipt Date: 20120815
  Transmission Date: 20120928
  Serious: Yes (Hospitalization)
  Sender: FDA-Public Use
  Company Number: NL-BIOGENIDEC-2012BI022550

PATIENT
  Age: 62 Year
  Sex: Male

DRUGS (11)
  1. AVONEX [Suspect]
     Indication: RELAPSING-REMITTING MULTIPLE SCLEROSIS
     Route: 030
     Dates: start: 20050101, end: 20111127
  2. SIMVASTATIN [Concomitant]
  3. ALVESCO [Concomitant]
  4. FLUTICASONE FUROATE [Concomitant]
     Route: 045
  5. SPIRIVA [Concomitant]
  6. PERINDOPRIL ERBUMINE [Concomitant]
  7. OMEPRAZOLE [Concomitant]
  8. ASCAL [Concomitant]
  9. AVONEX [Suspect]
     Route: 030
     Dates: start: 20111128
  10. HYDROCHLOROTHIAZIDE [Concomitant]
  11. ACETYLCYSTEINE [Concomitant]

REACTIONS (2)
  - BRONCHITIS [None]
  - CHRONIC OBSTRUCTIVE PULMONARY DISEASE [None]
